FAERS Safety Report 7605225-X (Version None)
Quarter: 2011Q3

REPORT INFORMATION
  Report Type: 
  Country: None (occurrence: None)
  Receive Date: 20110713
  Receipt Date: 20110629
  Transmission Date: 20111222
  Serious: Yes (Other)
  Sender: FDA-Public Use
  Company Number: JP-CELGENEUS-087-21880-11060007

PATIENT
  Sex: Female

DRUGS (10)
  1. DORIPENEM MONOHYDRATE [Concomitant]
     Indication: PROPHYLAXIS
     Dosage: 1 BOTTLE
     Route: 051
     Dates: start: 20110503, end: 20110513
  2. LANSOPRAZOLE [Concomitant]
     Indication: PROPHYLAXIS
     Dosage: 1 TABLET
     Route: 048
     Dates: start: 20110421, end: 20110518
  3. VFEND [Concomitant]
     Dosage: 6 TABLET
     Route: 048
     Dates: start: 20110421, end: 20110518
  4. MAGNESIUM OXIDE [Concomitant]
     Dosage: 3 TABLET
     Route: 048
     Dates: start: 20110421, end: 20110518
  5. SULFAMETHOXAZOLE [Concomitant]
     Indication: PROPHYLAXIS
     Dosage: 1 TABLET
     Route: 048
     Dates: start: 20110421, end: 20110518
  6. VOGLIBOSE [Concomitant]
     Indication: DIABETES MELLITUS
     Dosage: 2 TABLET
     Route: 048
     Dates: start: 20110421, end: 20110518
  7. CLARITHROMYCIN [Concomitant]
     Indication: PROPHYLAXIS
     Dosage: 2 TABLET
     Route: 048
     Dates: start: 20110425, end: 20110518
  8. MEROPENEM [Concomitant]
     Dosage: 1 KIT
     Route: 051
     Dates: start: 20110421, end: 20110502
  9. AMLODIPINE [Concomitant]
     Indication: HYPERTENSION
     Dosage: 1 TABLET
     Route: 048
     Dates: start: 20110421, end: 20110518
  10. REVLIMID [Suspect]
     Indication: MULTIPLE MYELOMA
     Dosage: 10 MILLIGRAM
     Route: 048
     Dates: start: 20110421, end: 20110511

REACTIONS (1)
  - DISSEMINATED INTRAVASCULAR COAGULATION [None]
